FAERS Safety Report 9793369 (Version 1)
Quarter: 2014Q1

REPORT INFORMATION
  Report Type: Spontaneous
  Country: US (occurrence: US)
  Receive Date: 20140102
  Receipt Date: 20140102
  Transmission Date: 20141002
  Serious: Yes (Other)
  Sender: FDA-Public Use
  Company Number: US-GILEAD-2013-0090886

PATIENT
  Sex: Female

DRUGS (2)
  1. LETAIRIS [Suspect]
     Indication: PRODUCT USED FOR UNKNOWN INDICATION
     Dosage: 5 MG, QD
     Route: 048
     Dates: start: 20120822
  2. ADCIRCA [Concomitant]
     Route: 065

REACTIONS (19)
  - Hepatitis B [Unknown]
  - Ocular icterus [Unknown]
  - Chromaturia [Unknown]
  - Decreased appetite [Unknown]
  - Pruritus [Unknown]
  - Insomnia [Unknown]
  - Respiratory tract infection [Unknown]
  - Cough [Unknown]
  - Dysphonia [Unknown]
  - Pyrexia [Unknown]
  - Laryngeal pain [Unknown]
  - Throat irritation [Unknown]
  - Menopause [Unknown]
  - Hot flush [Unknown]
  - Nasopharyngitis [Unknown]
  - Abdominal pain [Unknown]
  - Nausea [Unknown]
  - Sinusitis [Unknown]
  - Nasal congestion [Unknown]
